FAERS Safety Report 9025170 (Version 5)
Quarter: 2013Q4

REPORT INFORMATION
  Report Type: Spontaneous
  Country: US (occurrence: US)
  Receive Date: 20130122
  Receipt Date: 20131025
  Transmission Date: 20140711
  Serious: Yes (Hospitalization, Other)
  Sender: FDA-Public Use
  Company Number: US-009507513-2012SP012813

PATIENT
  Sex: Female
  Weight: 91.16 kg

DRUGS (2)
  1. NUVARING [Suspect]
     Indication: CONTRACEPTION
     Dosage: ONE RING EVERY MONTH
     Route: 067
     Dates: start: 200612
  2. NUVARING [Suspect]
     Dosage: UNK
     Route: 067
     Dates: end: 20100307

REACTIONS (20)
  - Drug dependence [Not Recovered/Not Resolved]
  - Pulmonary embolism [Unknown]
  - Deep vein thrombosis [Unknown]
  - Withdrawal syndrome [Unknown]
  - Depression [Unknown]
  - Carpal tunnel syndrome [Unknown]
  - Cervical dysplasia [Unknown]
  - Diverticulum [Unknown]
  - Hiatus hernia [Unknown]
  - Pancreatic disorder [Unknown]
  - Breast mass [Unknown]
  - Substance use [Not Recovered/Not Resolved]
  - Substance abuse [Not Recovered/Not Resolved]
  - Benign breast neoplasm [Unknown]
  - Insomnia [Unknown]
  - Sinus tarsi syndrome [Unknown]
  - Deep vein thrombosis [Unknown]
  - Benign breast lump removal [Unknown]
  - Viral infection [Unknown]
  - Incorrect drug administration duration [Unknown]
